FAERS Safety Report 6024732-7 (Version None)
Quarter: 2008Q4

REPORT INFORMATION
  Report Type: 
  Country: None (occurrence: None)
  Receive Date: 20081230
  Receipt Date: 20081230
  Transmission Date: 20090506
  Serious: Yes (Other)
  Sender: FDA-Public Use
  Company Number: None

PATIENT
  Age: 28 Year
  Sex: Female
  Weight: 68.0396 kg

DRUGS (1)
  1. MIRENA [Suspect]
     Indication: CONTRACEPTION
     Dosage: IUD 5 YEARS INTRA-UTERINE
     Route: 015
     Dates: start: 20080601, end: 20081229

REACTIONS (7)
  - DRUG EXPOSURE DURING PREGNANCY [None]
  - HEADACHE [None]
  - IUCD COMPLICATION [None]
  - MENORRHAGIA [None]
  - MOOD SWINGS [None]
  - PREGNANCY WITH CONTRACEPTIVE DEVICE [None]
  - THROMBOSIS [None]
